FAERS Safety Report 12245765 (Version 1)
Quarter: 2016Q2

REPORT INFORMATION
  Report Type: Spontaneous
  Country: IN (occurrence: IN)
  Receive Date: 20160407
  Receipt Date: 20160407
  Transmission Date: 20160815
  Serious: Yes (Other)
  Sender: FDA-Public Use
  Company Number: IN-CIPLA LTD.-2016IN03408

PATIENT

DRUGS (2)
  1. CARBOPLATIN. [Suspect]
     Active Substance: CARBOPLATIN
     Indication: LUNG SQUAMOUS CELL CARCINOMA STAGE III
     Dosage: AUC 5, ON DAY ONE OF EACH CYCLE, EVERY 3 WEEKS, 2 CYCLES
     Route: 042
  2. PACLITAXEL. [Suspect]
     Active Substance: PACLITAXEL
     Indication: LUNG SQUAMOUS CELL CARCINOMA STAGE III
     Dosage: 200 MG/M2 BODY SURFACE AREA, ON DAY ONE OF EACH CYCLE, EVERY 3 WEEKS, 2 CYCLES
     Route: 042

REACTIONS (1)
  - Disease progression [Unknown]
